FAERS Safety Report 23064238 (Version 1)
Quarter: 2023Q4

REPORT INFORMATION
  Report Type: Spontaneous
  Country: US (occurrence: None)
  Receive Date: 20231013
  Receipt Date: 20231013
  Transmission Date: 20240110
  Serious: Yes (Hospitalization)
  Sender: FDA-Public Use
  Company Number: None

PATIENT
  Age: 54 Year
  Sex: Male
  Weight: 150 kg

DRUGS (1)
  1. APIXABAN [Suspect]
     Active Substance: APIXABAN
     Dosage: FREQUENCY : TWICE A DAY;?
     Dates: start: 20211116, end: 20221007

REACTIONS (3)
  - Gastrointestinal haemorrhage [None]
  - Duodenal ulcer [None]
  - Therapy interrupted [None]

NARRATIVE: CASE EVENT DATE: 20221003
